FAERS Safety Report 6023177-3 (Version None)
Quarter: 2008Q4

REPORT INFORMATION
  Report Type: 
  Country: None (occurrence: None)
  Receive Date: 20081230
  Receipt Date: 20081219
  Transmission Date: 20090506
  Serious: Yes (Hospitalization)
  Sender: FDA-Public Use
  Company Number: D0057802A

PATIENT
  Age: 45 Year
  Sex: Female
  Weight: 73 kg

DRUGS (3)
  1. ATMADISC [Suspect]
     Indication: DYSPNOEA
     Dosage: 300MCG TWICE PER DAY
     Route: 055
     Dates: start: 20080401, end: 20080615
  2. ANTIBIOTIC [Concomitant]
     Route: 065
     Dates: start: 20080401
  3. CORTISONE ACETATE TAB [Concomitant]
     Route: 065
     Dates: start: 20080401

REACTIONS (2)
  - APHONIA [None]
  - DYSPHONIA [None]
